FAERS Safety Report 7208069-6 (Version None)
Quarter: 2011Q1

REPORT INFORMATION
  Report Type: 
  Country: None (occurrence: None)
  Receive Date: 20110104
  Receipt Date: 20101222
  Transmission Date: 20110831
  Serious: No
  Sender: FDA-Public Use
  Company Number: US-PFIZER INC-2010178286

PATIENT
  Sex: Female
  Weight: 56.689 kg

DRUGS (1)
  1. RELPAX [Suspect]
     Indication: MIGRAINE
     Dosage: 20 MG, 1/4 TO 1/2 TABLET, AS NEEDED

REACTIONS (1)
  - ALOPECIA [None]
